FAERS Safety Report 6838579-2 (Version None)
Quarter: 2010Q3

REPORT INFORMATION
  Report Type: 
  Country: None (occurrence: None)
  Receive Date: 20100709
  Receipt Date: 20100629
  Transmission Date: 20110219
  Serious: Yes (Other)
  Sender: FDA-Public Use
  Company Number: 2010MA000397

PATIENT
  Sex: Male

DRUGS (1)
  1. DILTIAZEM HYDROCHLORIDE EXTENDED-RELEASE CAPSULES USP, 300 MG (PUREPAC [Suspect]
     Indication: FREQUENT BOWEL MOVEMENTS
     Dosage: 2 PCT; RTL
     Route: 054

REACTIONS (1)
  - ANAL HAEMORRHAGE [None]
